FAERS Safety Report 12228839 (Version 1)
Quarter: 2016Q2

REPORT INFORMATION
  Report Type: Report from Study
  Country: AR (occurrence: AR)
  Receive Date: 20160401
  Receipt Date: 20160401
  Transmission Date: 20160815
  Serious: Yes (Life-Threatening, Hospitalization)
  Sender: FDA-Public Use
  Company Number: PHHY2015AR149187

PATIENT
  Age: 58 Year
  Sex: Female

DRUGS (3)
  1. TASIGNA [Suspect]
     Active Substance: NILOTINIB
     Dosage: 300 MG, QD
     Route: 048
     Dates: start: 20151007, end: 20160113
  2. TASIGNA [Suspect]
     Active Substance: NILOTINIB
     Dosage: 300 OT, UNK
     Route: 048
     Dates: end: 201601
  3. TASIGNA [Suspect]
     Active Substance: NILOTINIB
     Indication: CHRONIC MYELOID LEUKAEMIA
     Dosage: 600 MG, QD
     Route: 065
     Dates: start: 201510

REACTIONS (5)
  - Toxicity to various agents [Recovering/Resolving]
  - Bone marrow failure [Unknown]
  - Rash erythematous [Unknown]
  - Rash [Unknown]
  - Pancytopenia [Not Recovered/Not Resolved]

NARRATIVE: CASE EVENT DATE: 201601
